FAERS Safety Report 8150186 (Version 4)
Quarter: 2013Q4

REPORT INFORMATION
  Report Type: Spontaneous
  Country: GB (occurrence: None)
  Receive Date: 20110907
  Receipt Date: 20131113
  Transmission Date: 20140711
  Serious: Yes (Hospitalization)
  Sender: FDA-Public Use
  Company Number: 2011196378

PATIENT
  Age: 56 Year
  Sex: Female

DRUGS (7)
  1. DALTEPARIN SODIUM [Suspect]
     Indication: LUNG NEOPLASM MALIGNANT
     Dates: start: 20110506
  2. MORPHINE SULFATE [Concomitant]
  3. IBUPROFEN (IBUPROFEN) [Concomitant]
  4. ACETAMINOPHEN [Concomitant]
  5. LANSOPRAZOLE (LANSOPRAZOLE) [Concomitant]
  6. TAXOTERE [Concomitant]
  7. CISPLATIN [Concomitant]

REACTIONS (3)
  - Neutropenic infection [None]
  - Fatigue [None]
  - Pyrexia [None]
